FAERS Safety Report 17876328 (Version 2)
Quarter: 2020Q2

REPORT INFORMATION
  Report Type: Spontaneous
  Country: US (occurrence: US)
  Receive Date: 20200609
  Receipt Date: 20200610
  Transmission Date: 20200714
  Serious: Yes (Other)
  Sender: FDA-Public Use
  Company Number: US-PFIZER INC-2020223390

PATIENT
  Age: 82 Year
  Sex: Male

DRUGS (9)
  1. TIGECYCLINE. [Suspect]
     Active Substance: TIGECYCLINE
     Indication: MYCOBACTERIUM ABSCESSUS INFECTION
     Dosage: UNK
  2. MEROPENEM. [Concomitant]
     Active Substance: MEROPENEM
     Indication: MYCOBACTERIUM ABSCESSUS INFECTION
     Dosage: UNK
  3. AMIKACIN. [Concomitant]
     Active Substance: AMIKACIN
     Indication: MYCOBACTERIUM ABSCESSUS INFECTION
     Dosage: UNK
  4. AZITHROMYCIN ANHYDROUS. [Concomitant]
     Active Substance: AZITHROMYCIN ANHYDROUS
     Indication: MYCOBACTERIUM ABSCESSUS INFECTION
     Dosage: UNK
  5. AMIKACIN. [Concomitant]
     Active Substance: AMIKACIN
     Indication: PROPIONIBACTERIUM INFECTION
  6. TIGECYCLINE. [Suspect]
     Active Substance: TIGECYCLINE
     Indication: PROPIONIBACTERIUM INFECTION
  7. LINEZOLID. [Concomitant]
     Active Substance: LINEZOLID
     Indication: PROPIONIBACTERIUM INFECTION
  8. MEROPENEM. [Concomitant]
     Active Substance: MEROPENEM
     Indication: PROPIONIBACTERIUM INFECTION
  9. LINEZOLID. [Concomitant]
     Active Substance: LINEZOLID
     Indication: MYCOBACTERIUM ABSCESSUS INFECTION
     Dosage: UNK
     Route: 048

REACTIONS (1)
  - Barrett^s oesophagus [Unknown]
